FAERS Safety Report 4546076-2 (Version None)
Quarter: 2005Q1

REPORT INFORMATION
  Report Type: 
  Country: None (occurrence: None)
  Receive Date: 20050103
  Receipt Date: 20041223
  Transmission Date: 20050727
  Serious: No
  Sender: FDA-Public Use
  Company Number: 2004UW21330

PATIENT
  Age: 71 Year
  Sex: Female
  Weight: 62.5964 kg

DRUGS (5)
  1. CRESTOR [Suspect]
     Indication: BLOOD CHOLESTEROL INCREASED
     Dosage: 5 MG DAILY PO
     Route: 048
     Dates: start: 20041001, end: 20041015
  2. LEVOXYL [Concomitant]
  3. DIGOXIN [Concomitant]
  4. DIOVAN [Concomitant]
  5. TOPROL-XL [Concomitant]

REACTIONS (4)
  - FLUSHING [None]
  - NIGHT SWEATS [None]
  - RESTLESS LEGS SYNDROME [None]
  - SLEEP DISORDER [None]
